FAERS Safety Report 20264318 (Version 2)
Quarter: 2022Q3

REPORT INFORMATION
  Report Type: Spontaneous
  Country: CA (occurrence: CA)
  Receive Date: 20211231
  Receipt Date: 20220930
  Transmission Date: 20221027
  Serious: Yes (Other)
  Sender: FDA-Public Use
  Company Number: CA-SUN PHARMACEUTICAL INDUSTRIES LTD-2021R1-321670

PATIENT
  Age: 49 Year
  Sex: Male

DRUGS (1)
  1. BUPRENORPHINE\NALOXONE [Suspect]
     Active Substance: BUPRENORPHINE\NALOXONE
     Indication: Drug use disorder
     Dosage: UNK (2 MG/0.5 MG)
     Route: 065

REACTIONS (8)
  - Drug withdrawal syndrome [Unknown]
  - Rhinorrhoea [Unknown]
  - Hyperhidrosis [Unknown]
  - Lacrimation increased [Unknown]
  - Tremor [Unknown]
  - Diarrhoea [Unknown]
  - Agitation [Unknown]
  - Sitting disability [Unknown]
